FAERS Safety Report 26187937 (Version 1)
Quarter: 2025Q4

REPORT INFORMATION
  Report Type: Spontaneous
  Country: GB (occurrence: GB)
  Receive Date: 20251222
  Receipt Date: 20251222
  Transmission Date: 20260117
  Serious: Yes (Other)
  Sender: TAKEDA
  Company Number: None

PATIENT
  Age: 36 Year
  Sex: Male
  Weight: 79 kg

DRUGS (2)
  1. MESALAMINE [Suspect]
     Active Substance: MESALAMINE
     Indication: Product used for unknown indication
     Dosage: UNK
  2. STELARA [Concomitant]
     Active Substance: USTEKINUMAB
     Indication: Colitis ulcerative
     Dosage: UNK

REACTIONS (1)
  - Prostatic specific antigen increased [Unknown]

NARRATIVE: CASE EVENT DATE: 20250901
